FAERS Safety Report 8806211 (Version 1)
Quarter: 2012Q4

REPORT INFORMATION
  Report Type: Spontaneous
  Country: US (occurrence: None)
  Receive Date: 20120919
  Receipt Date: 20120919
  Transmission Date: 20130627
  Serious: Yes (Hospitalization)
  Sender: FDA-Public Use
  Company Number: None

PATIENT
  Age: 40 Year
  Sex: Female
  Weight: 70.31 kg

DRUGS (1)
  1. LOESTRIN 24 FE [Suspect]
     Dosage: 1Tablet Daily po
     Route: 048
     Dates: start: 20120210, end: 20120810

REACTIONS (1)
  - Pulmonary thrombosis [None]
